FAERS Safety Report 6272579-9 (Version None)
Quarter: 2009Q3

REPORT INFORMATION
  Report Type: 
  Country: None (occurrence: None)
  Receive Date: 20090717
  Receipt Date: 20090707
  Transmission Date: 20100115
  Serious: Yes (Hospitalization)
  Sender: FDA-Public Use
  Company Number: JP-ABBOTT-09P-087-0559713-00

PATIENT
  Sex: Female
  Weight: 56 kg

DRUGS (8)
  1. HUMIRA [Suspect]
     Indication: CROHN'S DISEASE
     Route: 058
     Dates: start: 20070501, end: 20080307
  2. HUMIRA [Suspect]
     Route: 058
     Dates: start: 20080324
  3. PENTASA [Concomitant]
     Indication: CROHN'S DISEASE
     Route: 048
     Dates: start: 20080616
  4. ELENTAL [Concomitant]
     Indication: CROHN'S DISEASE
     Route: 048
     Dates: start: 20070208
  5. FAMOTIDINE [Concomitant]
     Indication: GASTRITIS
     Route: 048
     Dates: start: 20080404
  6. MIYA BM [Concomitant]
     Indication: DISBACTERIOSIS
     Route: 048
     Dates: start: 20070514
  7. POVIDONE IODINE [Concomitant]
     Indication: PROPHYLAXIS
     Dosage: GARGLE
     Route: 048
     Dates: start: 20071115
  8. POVIDONE IODINE [Concomitant]
     Indication: NASOPHARYNGITIS

REACTIONS (5)
  - CROHN'S DISEASE [None]
  - HAEMATOCRIT DECREASED [None]
  - HAEMOGLOBIN DECREASED [None]
  - PLATELET COUNT INCREASED [None]
  - PSYCHOSOMATIC DISEASE [None]
